FAERS Safety Report 22166091 (Version 1)
Quarter: 2023Q2

REPORT INFORMATION
  Report Type: Spontaneous
  Country: FR (occurrence: FR)
  Receive Date: 20230403
  Receipt Date: 20230403
  Transmission Date: 20230722
  Serious: Yes (Other)
  Sender: FDA-Public Use
  Company Number: None

PATIENT
  Age: 44 Year
  Sex: Male
  Weight: 78 kg

DRUGS (2)
  1. CLINDAMYCIN [Suspect]
     Active Substance: CLINDAMYCIN
     Indication: Malaria
     Dosage: 10 MG/KG, 1X/DAY
     Route: 042
     Dates: start: 20220916, end: 20220919
  2. QUININE SULFATE [Suspect]
     Active Substance: QUININE SULFATE
     Indication: Malaria
     Dosage: 8 MG/KG, 1X/DAY
     Route: 042
     Dates: start: 20220916, end: 20220919

REACTIONS (3)
  - Electrocardiogram QT prolonged [Recovered/Resolved]
  - Hypoacusis [Recovered/Resolved]
  - Off label use [Unknown]

NARRATIVE: CASE EVENT DATE: 20220916
